FAERS Safety Report 9723662 (Version 1)
Quarter: 2013Q4

REPORT INFORMATION
  Report Type: Spontaneous
  Country: FR (occurrence: FR)
  Receive Date: 20131202
  Receipt Date: 20131202
  Transmission Date: 20140711
  Serious: Yes (Hospitalization)
  Sender: FDA-Public Use
  Company Number: FR-GLAXOSMITHKLINE-B0947067A

PATIENT
  Age: 89 Year
  Sex: Female

DRUGS (6)
  1. ARIXTRA [Suspect]
     Indication: THROMBOSIS PROPHYLAXIS
     Dosage: 2.5MG PER DAY
     Route: 058
     Dates: start: 20130610, end: 20130617
  2. FUROSEMIDE [Concomitant]
  3. LEVOTHYROX [Concomitant]
  4. ZOPICLONE [Concomitant]
  5. XANAX [Concomitant]
  6. CHOLESTAT [Concomitant]

REACTIONS (3)
  - Muscle haemorrhage [Recovered/Resolved]
  - Anaemia [Recovered/Resolved]
  - General physical health deterioration [Unknown]
